FAERS Safety Report 6046050-3 (Version None)
Quarter: 2009Q1

REPORT INFORMATION
  Report Type: 
  Country: None (occurrence: None)
  Receive Date: 20090116
  Receipt Date: 20090103
  Transmission Date: 20090719
  Serious: Yes (Other)
  Sender: FDA-Public Use
  Company Number: CHPA2008US20043

PATIENT
  Age: 67 Year
  Sex: Female

DRUGS (6)
  1. EXCEDRIN ES BACK + BODY (NCH)(ACETYLSALICYLIC ACID, ACETAMINOPHEN (PAR [Suspect]
     Indication: ARTHRALGIA
     Dosage: 2 DF, BID, ORAL;   1 DF, ONCE/SINGLE, ORAL
     Route: 048
     Dates: end: 20081001
  2. EXCEDRIN ES BACK + BODY (NCH)(ACETYLSALICYLIC ACID, ACETAMINOPHEN (PAR [Suspect]
     Indication: BACK PAIN
     Dosage: 2 DF, BID, ORAL;   1 DF, ONCE/SINGLE, ORAL
     Route: 048
     Dates: end: 20081001
  3. EXCEDRIN ES BACK + BODY (NCH)(ACETYLSALICYLIC ACID, ACETAMINOPHEN (PAR [Suspect]
     Indication: PAIN
     Dosage: 2 DF, BID, ORAL;   1 DF, ONCE/SINGLE, ORAL
     Route: 048
     Dates: end: 20081001
  4. EXCEDRIN ES BACK + BODY (NCH)(ACETYLSALICYLIC ACID, ACETAMINOPHEN (PAR [Suspect]
     Indication: ARTHRALGIA
     Dosage: 2 DF, BID, ORAL;   1 DF, ONCE/SINGLE, ORAL
     Route: 048
     Dates: start: 20081025, end: 20081026
  5. EXCEDRIN ES BACK + BODY (NCH)(ACETYLSALICYLIC ACID, ACETAMINOPHEN (PAR [Suspect]
     Indication: BACK PAIN
     Dosage: 2 DF, BID, ORAL;   1 DF, ONCE/SINGLE, ORAL
     Route: 048
     Dates: start: 20081025, end: 20081026
  6. EXCEDRIN ES BACK + BODY (NCH)(ACETYLSALICYLIC ACID, ACETAMINOPHEN (PAR [Suspect]
     Indication: PAIN
     Dosage: 2 DF, BID, ORAL;   1 DF, ONCE/SINGLE, ORAL
     Route: 048
     Dates: start: 20081025, end: 20081026

REACTIONS (2)
  - ABDOMINAL PAIN UPPER [None]
  - HAEMATOCHEZIA [None]
